FAERS Safety Report 14559729 (Version 1)
Quarter: 2018Q1

REPORT INFORMATION
  Report Type: Spontaneous
  Country: US (occurrence: US)
  Receive Date: 20180220
  Receipt Date: 20180220
  Transmission Date: 20180509
  Serious: Yes (Other)
  Sender: FDA-Public Use
  Company Number: None

PATIENT
  Age: 28 Year
  Sex: Female
  Weight: 75.3 kg

DRUGS (1)
  1. SKYLA [Suspect]
     Active Substance: LEVONORGESTREL
     Dates: start: 20160719, end: 20180220

REACTIONS (2)
  - Pregnancy with contraceptive device [None]
  - Exposure during pregnancy [None]

NARRATIVE: CASE EVENT DATE: 20180220
